FAERS Safety Report 7208305-6 (Version None)
Quarter: 2010Q4

REPORT INFORMATION
  Report Type: 
  Country: None (occurrence: None)
  Receive Date: 20101126
  Receipt Date: 20100830
  Transmission Date: 20110411
  Serious: Yes (Other)
  Sender: FDA-Public Use
  Company Number: 313986

PATIENT
  Sex: Female

DRUGS (2)
  1. VICTOZA [Suspect]
     Indication: OFF LABEL USE
     Dosage: 1.8 MG, QD, SUBCUTANEOUS
     Route: 058
     Dates: start: 20100101
  2. VICTOZA [Suspect]
     Indication: WEIGHT CONTROL
     Dosage: 1.8 MG, QD, SUBCUTANEOUS
     Route: 058
     Dates: start: 20100101

REACTIONS (2)
  - OFF LABEL USE [None]
  - PANCREATITIS ACUTE [None]
